FAERS Safety Report 23646971 (Version 1)
Quarter: 2024Q1

REPORT INFORMATION
  Report Type: Spontaneous
  Country: GB (occurrence: GB)
  Receive Date: 20240319
  Receipt Date: 20240319
  Transmission Date: 20240410
  Serious: Yes (Hospitalization, Other)
  Sender: FDA-Public Use
  Company Number: None

PATIENT
  Age: 31 Year
  Sex: Male
  Weight: 72 kg

DRUGS (3)
  1. FLUOXETINE [Suspect]
     Active Substance: FLUOXETINE HYDROCHLORIDE
     Indication: Major depression
     Dosage: 20MG ONCE A DAY IN THE MORNING
     Dates: start: 20240105, end: 20240222
  2. QUETIAPINE [Concomitant]
     Active Substance: QUETIAPINE
     Indication: Insomnia
     Dates: start: 20240126, end: 20240210
  3. ZOPICLONE [Concomitant]
     Active Substance: ZOPICLONE
     Indication: Insomnia
     Dates: start: 20240105, end: 20240124

REACTIONS (15)
  - Anger [Recovered/Resolved]
  - Libido decreased [Recovered/Resolved]
  - Hypersexuality [Recovered/Resolved]
  - Insomnia [Recovered/Resolved]
  - Appetite disorder [Recovered/Resolved]
  - Anorgasmia [Recovered/Resolved]
  - Bruxism [Recovered/Resolved]
  - Mucosal haemorrhage [Recovered/Resolved]
  - Affect lability [Recovered/Resolved]
  - Coordination abnormal [Recovered/Resolved]
  - Mydriasis [Recovered/Resolved]
  - Cold sweat [Recovered/Resolved]
  - Amnesia [Recovered/Resolved]
  - Malaise [Recovered/Resolved]
  - Dysarthria [Recovered/Resolved]

NARRATIVE: CASE EVENT DATE: 20240105
